FAERS Safety Report 5752594-1 (Version None)
Quarter: 2008Q2

REPORT INFORMATION
  Report Type: 
  Country: None (occurrence: None)
  Receive Date: 20080529
  Receipt Date: 20080415
  Transmission Date: 20081010
  Serious: No
  Sender: FDA-Public Use
  Company Number: US-BAYER-200811674BCC

PATIENT
  Age: 87 Year
  Sex: Female
  Weight: 64 kg

DRUGS (5)
  1. ALEVE (CAPLET) [Suspect]
     Indication: SCIATICA
     Route: 048
  2. LYRICA [Concomitant]
  3. ROBITUSSIN [Concomitant]
  4. SIMVASTATIN [Concomitant]
  5. ASPIRIN [Concomitant]
     Indication: ANTICOAGULANT THERAPY
     Route: 048

REACTIONS (3)
  - BACK PAIN [None]
  - PAIN IN EXTREMITY [None]
  - SCIATICA [None]
